FAERS Safety Report 5841531-7 (Version None)
Quarter: 2008Q3

REPORT INFORMATION
  Report Type: 
  Country: None (occurrence: None)
  Receive Date: 20080812
  Receipt Date: 20080730
  Transmission Date: 20090109
  Serious: Yes (Death)
  Sender: FDA-Public Use
  Company Number: US-ROCHE-573356

PATIENT
  Sex: Male
  Weight: 67 kg

DRUGS (8)
  1. MYCOPHENOLATE MOFETIL [Suspect]
     Dosage: 250 MG ( 4 TWICE DAILY)
     Route: 048
     Dates: start: 20011007, end: 20080609
  2. GENGRAF [Concomitant]
     Route: 048
     Dates: start: 20011007, end: 20080609
  3. ALPRAZOLAM [Concomitant]
     Dosage: THREE TIMES DAILY AS NEEDED
  4. PROTONIX [Concomitant]
     Dosage: ONE EVERY DAY
  5. LISINOPRIL [Concomitant]
  6. PROZAC [Concomitant]
  7. PREDNISONE TAB [Concomitant]
     Dosage: ONE EVERY DAY
  8. MAGNESIUM OXIDE [Concomitant]
     Dosage: MAG OXIDE-ST JOHN WT-BLK COH; STRENGTH: 100-300-20 MG; TWO TIMES

REACTIONS (1)
  - COMPLETED SUICIDE [None]
